FAERS Safety Report 19787915 (Version 6)
Quarter: 2022Q2

REPORT INFORMATION
  Report Type: Report from Study
  Country: CA (occurrence: CA)
  Receive Date: 20210903
  Receipt Date: 20220426
  Transmission Date: 20220721
  Serious: Yes (Other)
  Sender: FDA-Public Use
  Company Number: CA-BAUSCH-BL-2019-023691

PATIENT
  Age: 66 Year
  Sex: Female

DRUGS (3)
  1. SILIQ [Suspect]
     Active Substance: BRODALUMAB
     Indication: Psoriasis
     Dosage: 210 MG/ 1.5 ML (AT WEEK 0, 1 AND 2)
     Route: 058
     Dates: start: 20190715, end: 201907
  2. SILIQ [Suspect]
     Active Substance: BRODALUMAB
     Dosage: 210 MG/ 1.5 ML
     Route: 058
     Dates: start: 201908
  3. CORTISONE [Concomitant]
     Active Substance: CORTISONE
     Indication: Product used for unknown indication

REACTIONS (17)
  - Osteoarthritis [Unknown]
  - Psoriatic arthropathy [Unknown]
  - Cellulitis [Not Recovered/Not Resolved]
  - Pneumonia [Unknown]
  - Phlebitis [Not Recovered/Not Resolved]
  - Productive cough [Recovering/Resolving]
  - Asthenia [Unknown]
  - Oesophageal polyp [Unknown]
  - Psoriasis [Recovered/Resolved]
  - Disease recurrence [Recovered/Resolved]
  - Tooth disorder [Unknown]
  - Haematoma [Unknown]
  - Dry mouth [Unknown]
  - Dry throat [Unknown]
  - Injury [Unknown]
  - Tongue fungal infection [Unknown]
  - Intentional dose omission [Unknown]

NARRATIVE: CASE EVENT DATE: 20190101
